FAERS Safety Report 17558787 (Version 3)
Quarter: 2020Q3

REPORT INFORMATION
  Report Type: Report from Study
  Country: None (occurrence: US)
  Receive Date: 20200318
  Receipt Date: 20200818
  Transmission Date: 20201102
  Serious: Yes (Hospitalization, Other)
  Sender: FDA-Public Use
  Company Number: US-ABBVIE-20K-163-3326508-00

PATIENT
  Age: 70 Year
  Sex: Female

DRUGS (3)
  1. HUMIRA [Suspect]
     Active Substance: ADALIMUMAB
     Indication: COLITIS ULCERATIVE
     Route: 058
     Dates: start: 201909, end: 2020
  2. VITAMINS NOS [Concomitant]
     Active Substance: VITAMINS
     Indication: VITAMIN SUPPLEMENTATION
  3. HUMIRA [Suspect]
     Active Substance: ADALIMUMAB
     Route: 058
     Dates: start: 2020

REACTIONS (11)
  - Skin discolouration [Recovering/Resolving]
  - Gait disturbance [Recovering/Resolving]
  - Neuralgia [Recovering/Resolving]
  - Constipation [Unknown]
  - Flatulence [Unknown]
  - Abdominal discomfort [Unknown]
  - Pain in extremity [Recovering/Resolving]
  - Abdominal pain [Unknown]
  - Peripheral arterial occlusive disease [Recovering/Resolving]
  - Arterial occlusive disease [Recovering/Resolving]
  - Insomnia [Recovering/Resolving]

NARRATIVE: CASE EVENT DATE: 201912
